FAERS Safety Report 4733079-8 (Version None)
Quarter: 2005Q3

REPORT INFORMATION
  Report Type: 
  Country: None (occurrence: None)
  Receive Date: 20050803
  Receipt Date: 20050725
  Transmission Date: 20060218
  Serious: Yes (Other)
  Sender: FDA-Public Use
  Company Number: PHBS2005JP10835

PATIENT
  Age: 20 Year
  Sex: Male

DRUGS (2)
  1. ANTIBIOTICS [Concomitant]
  2. VOLTAREN [Suspect]
     Indication: MUMPS
     Route: 054

REACTIONS (2)
  - CONVULSION [None]
  - LOSS OF CONSCIOUSNESS [None]
